FAERS Safety Report 22138125 (Version 6)
Quarter: 2024Q2

REPORT INFORMATION
  Report Type: Report from Study
  Country: US (occurrence: US)
  Receive Date: 20230325
  Receipt Date: 20240522
  Transmission Date: 20240716
  Serious: No
  Sender: FDA-Public Use
  Company Number: US-002147023-NVSC2023US069788

PATIENT
  Age: 26 Year
  Sex: Female

DRUGS (6)
  1. VIJOICE [Suspect]
     Active Substance: ALPELISIB
     Indication: PIK3CA related overgrowth spectrum
     Dosage: 250 MG, QD
     Route: 048
     Dates: start: 20221129, end: 20230522
  2. VIJOICE [Suspect]
     Active Substance: ALPELISIB
     Indication: Klippel-Trenaunay syndrome
     Dosage: 125 MG
     Route: 048
  3. VIJOICE [Suspect]
     Active Substance: ALPELISIB
     Dosage: 250 MG
     Route: 048
     Dates: start: 20221214, end: 20221226
  4. BUSPIRONE [Concomitant]
     Active Substance: BUSPIRONE HYDROCHLORIDE
     Indication: Anxiety
     Dosage: 15 MG
     Route: 048
  5. CYCLOBENZAPRINE [Concomitant]
     Active Substance: CYCLOBENZAPRINE
     Indication: Klippel-Trenaunay syndrome
     Dosage: UNK
     Route: 048
  6. PREGABALIN [Concomitant]
     Active Substance: PREGABALIN
     Indication: Klippel-Trenaunay syndrome
     Dosage: 200 MG
     Route: 048
     Dates: start: 20230316

REACTIONS (4)
  - Urticaria [Recovered/Resolved]
  - Pyrexia [Unknown]
  - Product dispensing error [Unknown]
  - Product availability issue [Unknown]

NARRATIVE: CASE EVENT DATE: 20221225
